FAERS Safety Report 26156176 (Version 1)
Quarter: 2025Q4

REPORT INFORMATION
  Report Type: Spontaneous
  Country: US (occurrence: US)
  Receive Date: 20251215
  Receipt Date: 20251215
  Transmission Date: 20260117
  Serious: No
  Sender: ALCON
  Company Number: US-ALCON LABORATORIES-ALC2025US006376

PATIENT
  Age: 78 Year
  Sex: Male

DRUGS (1)
  1. ACOLTREMON [Suspect]
     Active Substance: ACOLTREMON
     Indication: Product used for unknown indication
     Dosage: 1 FULL VIAL FOR EACH EYE, SO HE USED 4 VIALS PER DAY
     Route: 047

REACTIONS (1)
  - Overdose [Unknown]
